FAERS Safety Report 18947570 (Version 1)
Quarter: 2021Q1

REPORT INFORMATION
  Report Type: Report from Study
  Country: CO (occurrence: CO)
  Receive Date: 20210226
  Receipt Date: 20210226
  Transmission Date: 20210420
  Serious: Yes (Death)
  Sender: FDA-Public Use
  Company Number: CO-ASTRAZENECA-2021A087547

PATIENT
  Age: 18371 Day
  Sex: Male

DRUGS (2)
  1. BRILINTA [Suspect]
     Active Substance: TICAGRELOR
     Indication: ACUTE MYOCARDIAL INFARCTION
     Route: 048
     Dates: start: 20201008
  2. BRILINTA [Suspect]
     Active Substance: TICAGRELOR
     Indication: CARDIAC PACEMAKER INSERTION
     Route: 048
     Dates: start: 20201008

REACTIONS (1)
  - Death [Fatal]

NARRATIVE: CASE EVENT DATE: 20201020
